FAERS Safety Report 18725698 (Version 5)
Quarter: 2024Q1

REPORT INFORMATION
  Report Type: Report from Study
  Country: CN (occurrence: CN)
  Receive Date: 20210111
  Receipt Date: 20240126
  Transmission Date: 20240410
  Serious: Yes (Hospitalization)
  Sender: FDA-Public Use
  Company Number: CN-TAKEDA-2021TUS001026

PATIENT
  Age: 32 Year
  Sex: Male
  Weight: 70 kg

DRUGS (6)
  1. ADVATE [Suspect]
     Active Substance: ANTIHEMOPHILIC FACTOR, HUMAN RECOMBINANT
     Indication: Factor VIII deficiency
     Dosage: UNK
     Route: 042
     Dates: start: 20200821
  2. ADVATE [Suspect]
     Active Substance: ANTIHEMOPHILIC FACTOR, HUMAN RECOMBINANT
     Indication: Factor VIII deficiency
     Dosage: UNK
     Route: 042
     Dates: start: 20200821
  3. ADVATE [Suspect]
     Active Substance: ANTIHEMOPHILIC FACTOR, HUMAN RECOMBINANT
     Indication: Factor VIII deficiency
     Dosage: UNK
     Route: 042
     Dates: start: 20200821
  4. NIMESULIDE [Concomitant]
     Active Substance: NIMESULIDE
     Indication: Analgesic therapy
     Dosage: 100 MILLIGRAM, QD
     Route: 048
     Dates: start: 201902
  5. NIMESULIDE [Concomitant]
     Active Substance: NIMESULIDE
     Indication: Pain
  6. Compound paracetamol and amantadine hydrochloride [Concomitant]
     Indication: Rhinorrhoea
     Dosage: 1 DOSAGE FORM, QD
     Route: 065
     Dates: start: 20210501, end: 20210503

REACTIONS (1)
  - Humerus fracture [Recovered/Resolved]

NARRATIVE: CASE EVENT DATE: 20210102
